FAERS Safety Report 8277694-6 (Version None)
Quarter: 2012Q2

REPORT INFORMATION
  Report Type: 
  Country: None (occurrence: None)
  Receive Date: 20120412
  Receipt Date: 20120406
  Transmission Date: 20120825
  Serious: Yes (Other)
  Sender: FDA-Public Use
  Company Number: US-PFIZER INC-2012054880

PATIENT
  Sex: Female

DRUGS (2)
  1. TOVIAZ [Suspect]
     Indication: BLADDER DISORDER
  2. TOVIAZ [Suspect]
     Indication: HYPERTONIC BLADDER
     Dosage: UNK, DAILY 2 OR 3 X/WEEK
     Route: 048
     Dates: start: 20120307

REACTIONS (4)
  - URINARY RETENTION [None]
  - NOCTURIA [None]
  - INSOMNIA [None]
  - DYSURIA [None]
